FAERS Safety Report 20467091 (Version 1)
Quarter: 2022Q1

REPORT INFORMATION
  Report Type: Spontaneous
  Country: US (occurrence: US)
  Receive Date: 20220214
  Receipt Date: 20220214
  Transmission Date: 20220423
  Serious: Yes (Other)
  Sender: FDA-Public Use
  Company Number: US-JNJFOC-20220206797

PATIENT

DRUGS (1)
  1. BENADRYL ALLERGY ULTRATAB [Suspect]
     Active Substance: DIPHENHYDRAMINE HYDROCHLORIDE
     Indication: Sleep disorder therapy
     Route: 065

REACTIONS (3)
  - Coma [Recovered/Resolved]
  - Product use in unapproved indication [Unknown]
  - Somnolence [Unknown]
